FAERS Safety Report 5147839-5 (Version None)
Quarter: 2006Q3

REPORT INFORMATION
  Report Type: 
  Country: None (occurrence: None)
  Receive Date: 20060915
  Receipt Date: 20060801
  Transmission Date: 20061208
  Serious: No
  Sender: FDA-Public Use
  Company Number: 2006RL000302

PATIENT
  Age: 34 Year
  Sex: Female
  Weight: 108.8633 kg

DRUGS (1)
  1. OMACOR [Suspect]
     Indication: BLOOD TRIGLYCERIDES INCREASED

REACTIONS (1)
  - RASH [None]
